FAERS Safety Report 6056037-2 (Version None)
Quarter: 2009Q1

REPORT INFORMATION
  Report Type: 
  Country: None (occurrence: None)
  Receive Date: 20090128
  Receipt Date: 20090114
  Transmission Date: 20090719
  Serious: Yes (Other)
  Sender: FDA-Public Use
  Company Number: US-ELI_LILLY_AND_COMPANY-US200901002251

PATIENT
  Sex: Female

DRUGS (3)
  1. FORTEO [Suspect]
     Dates: start: 20081001
  2. VITAMINS NOS [Concomitant]
     Dates: end: 20090101
  3. CALCIUM                                 /N/A/ [Concomitant]

REACTIONS (11)
  - ASTHENIA [None]
  - BODY TEMPERATURE INCREASED [None]
  - DEHYDRATION [None]
  - FALL [None]
  - FEELING ABNORMAL [None]
  - FEELING COLD [None]
  - GAIT DISTURBANCE [None]
  - HEAD INJURY [None]
  - MALAISE [None]
  - SOMNOLENCE [None]
  - TREMOR [None]
